FAERS Safety Report 10222778 (Version 3)
Quarter: 2014Q4

REPORT INFORMATION
  Report Type: Report from Study
  Country: JP (occurrence: JP)
  Receive Date: 20140606
  Receipt Date: 20141211
  Transmission Date: 20150528
  Serious: Yes (Life-Threatening, Hospitalization)
  Sender: FDA-Public Use
  Company Number: JP-BRISTOL-MYERS SQUIBB COMPANY-20776480

PATIENT
  Age: 65 Year
  Sex: Male

DRUGS (19)
  1. PLACEBO [Suspect]
     Active Substance: UNSPECIFIED INGREDIENT
     Indication: NON-SMALL CELL LUNG CANCER
     Dosage: 30APR14-30APR14
     Route: 042
     Dates: start: 20140317, end: 20140430
  2. BLINDED CARBOPLATIN [Suspect]
     Active Substance: CARBOPLATIN
     Indication: NON-SMALL CELL LUNG CANCER
     Dosage: 30APR14-30APR14
     Route: 042
     Dates: start: 20140317, end: 20140430
  3. BISOPROLOL FUMARATE. [Concomitant]
     Active Substance: BISOPROLOL FUMARATE
     Dosage: UNK
     Dates: start: 20140502
  4. GOSHAJINKIGAN [Concomitant]
     Active Substance: HERBALS
  5. PLACEBO [Suspect]
     Active Substance: UNSPECIFIED INGREDIENT
     Indication: NON-SMALL CELL LUNG CANCER
     Dosage: 30APR14-30APR14
     Route: 042
     Dates: start: 20140317, end: 20140430
  6. BLINDED IPILIMUMAB [Suspect]
     Active Substance: IPILIMUMAB
     Indication: NON-SMALL CELL LUNG CANCER
     Dosage: 30APR14-30APR14
     Route: 042
     Dates: start: 20140317, end: 20140430
  7. BLINDED IPILIMUMAB [Suspect]
     Active Substance: IPILIMUMAB
     Indication: NON-SMALL CELL LUNG CANCER
     Dosage: 30APR14-30APR14
     Route: 042
     Dates: start: 20140317, end: 20140430
  8. CILOSTAZOL. [Concomitant]
     Active Substance: CILOSTAZOL
  9. LOXOPROFEN SODIUM [Concomitant]
     Active Substance: LOXOPROFEN SODIUM
  10. PLACEBO [Suspect]
     Active Substance: UNSPECIFIED INGREDIENT
     Indication: NON-SMALL CELL LUNG CANCER
     Dosage: COURSES: 1
     Route: 042
     Dates: start: 20140430, end: 20140430
  11. BLINDED PACLITAXEL [Suspect]
     Active Substance: PACLITAXEL
     Indication: NON-SMALL CELL LUNG CANCER
     Dosage: 30APR14-30APR14
     Route: 042
     Dates: start: 20140317, end: 20140430
  12. BLINDED IPILIMUMAB [Suspect]
     Active Substance: IPILIMUMAB
     Indication: NON-SMALL CELL LUNG CANCER
     Dosage: COURSES: 1
     Route: 042
     Dates: start: 20140430, end: 20140430
  13. HERBAL NOS [Concomitant]
     Active Substance: HERBALS
  14. CYANOCOBALAMINE [Concomitant]
  15. DIMETHICONE. [Concomitant]
     Active Substance: DIMETHICONE
  16. RABEPRAZOLE SODIUM. [Concomitant]
     Active Substance: RABEPRAZOLE SODIUM
  17. EPERISONE HCL [Concomitant]
  18. NAFTOPIDIL [Concomitant]
     Active Substance: NAFTOPIDIL
  19. REBAMIPIDE [Concomitant]
     Active Substance: REBAMIPIDE

REACTIONS (2)
  - Liver function test abnormal [Recovered/Resolved with Sequelae]
  - Febrile neutropenia [Recovered/Resolved]

NARRATIVE: CASE EVENT DATE: 20140515
